FAERS Safety Report 18638404 (Version 1)
Quarter: 2020Q4

REPORT INFORMATION
  Report Type: Report from Study
  Country: US (occurrence: US)
  Receive Date: 20201218
  Receipt Date: 20201218
  Transmission Date: 20210114
  Serious: No
  Sender: FDA-Public Use
  Company Number: US-REGENERON PHARMACEUTICALS, INC.-2020-74856

PATIENT

DRUGS (6)
  1. ACYCLOVIR                          /00587301/ [Concomitant]
     Active Substance: ACYCLOVIR
     Indication: PRODUCT USED FOR UNKNOWN INDICATION
  2. EYLEA [Suspect]
     Active Substance: AFLIBERCEPT
     Dosage: 2MG, 0.05 ML IN THE RIGHT EYE EVERY 3 MONTHS
     Route: 031
     Dates: end: 20200903
  3. EYLEA [Suspect]
     Active Substance: AFLIBERCEPT
     Dosage: 2MG, 0.05 ML IN LEFT EYE EVERY 6 WEEKS
     Route: 031
     Dates: start: 20201105, end: 20201105
  4. EYLEA [Suspect]
     Active Substance: AFLIBERCEPT
     Dosage: 2MG, 0.05 ML, IN LEFT EYE EVERY 6 WEEKS
     Route: 031
  5. EYLEA [Suspect]
     Active Substance: AFLIBERCEPT
     Dosage: 2MG, 0.05 ML IN THE RIGHT EYE EVERY 3 MONTHS
     Route: 031
     Dates: start: 20200903, end: 20200903
  6. EYLEA [Suspect]
     Active Substance: AFLIBERCEPT
     Indication: NEOVASCULAR AGE-RELATED MACULAR DEGENERATION
     Dosage: 2 MG, 0.05ML , BOTH EYES
     Route: 031

REACTIONS (6)
  - Sinus congestion [Unknown]
  - Ocular hyperaemia [Unknown]
  - Dizziness [Unknown]
  - Wrong technique in product usage process [Unknown]
  - Drug ineffective [Unknown]
  - Eye inflammation [Unknown]

NARRATIVE: CASE EVENT DATE: 20200905
